FAERS Safety Report 24768204 (Version 1)
Quarter: 2024Q4

REPORT INFORMATION
  Report Type: Spontaneous
  Country: US (occurrence: None)
  Receive Date: 20241223
  Receipt Date: 20241223
  Transmission Date: 20250115
  Serious: Yes (Hospitalization)
  Sender: Public
  Company Number: None

PATIENT
  Age: 59 Year
  Sex: Female
  Weight: 103.9 kg

DRUGS (4)
  1. VANCOMYCIN [Suspect]
     Active Substance: VANCOMYCIN
     Indication: Device related infection
     Dosage: 1 G GRAM(S) TWICE A DAY INTRAVENOUS
     Route: 042
     Dates: start: 20241206, end: 20241208
  2. DAPTOMYCIN [Suspect]
     Active Substance: DAPTOMYCIN
     Indication: Device related infection
     Dosage: 650 MG DAILY INTRAVENOUS
     Route: 042
     Dates: start: 20241118, end: 20241206
  3. CEFTRIAXONE [Suspect]
     Active Substance: CEFTRIAXONE
  4. RIFAMPIN [Suspect]
     Active Substance: RIFAMPIN

REACTIONS (4)
  - Petechiae [None]
  - Dyspnoea [None]
  - Type IV hypersensitivity reaction [None]
  - Eosinophilia [None]

NARRATIVE: CASE EVENT DATE: 20241208
